FAERS Safety Report 20726956 (Version 5)
Quarter: 2022Q3

REPORT INFORMATION
  Report Type: Report from Study
  Country: US (occurrence: US)
  Receive Date: 20220419
  Receipt Date: 20220810
  Transmission Date: 20221027
  Serious: Yes (Hospitalization, Other)
  Sender: FDA-Public Use
  Company Number: US-BIOVITRUM-2022US05180

PATIENT
  Age: 49 Year
  Sex: Female

DRUGS (4)
  1. KINERET [Suspect]
     Active Substance: ANAKINRA
     Indication: Still^s disease
     Dates: start: 202112
  2. KINERET [Suspect]
     Active Substance: ANAKINRA
     Dates: start: 20210712
  3. KINERET [Suspect]
     Active Substance: ANAKINRA
     Dates: start: 202201
  4. KINERET [Suspect]
     Active Substance: ANAKINRA
     Dates: start: 20220125

REACTIONS (5)
  - Abdominal pain upper [Unknown]
  - Cystitis [Unknown]
  - Kidney infection [Unknown]
  - Product dose omission issue [Unknown]
  - Off label use [Not Recovered/Not Resolved]

NARRATIVE: CASE EVENT DATE: 20220125
